FAERS Safety Report 23707491 (Version 7)
Quarter: 2025Q1

REPORT INFORMATION
  Report Type: Report from Study
  Country: US (occurrence: US)
  Receive Date: 20240404
  Receipt Date: 20250303
  Transmission Date: 20250409
  Serious: Yes (Other)
  Sender: NOVARTIS
  Company Number: US-002147023-NVSC2023US258114

PATIENT
  Sex: Female

DRUGS (3)
  1. KESIMPTA [Suspect]
     Active Substance: OFATUMUMAB
     Indication: Product used for unknown indication
     Route: 058
     Dates: start: 20231119
  2. KESIMPTA [Suspect]
     Active Substance: OFATUMUMAB
     Route: 058
  3. PANTOPRAZOLE [Concomitant]
     Active Substance: PANTOPRAZOLE
     Indication: Product used for unknown indication
     Route: 065

REACTIONS (12)
  - Multiple sclerosis [Unknown]
  - Dizziness [Recovering/Resolving]
  - Temperature intolerance [Recovering/Resolving]
  - Visual impairment [Unknown]
  - Feeling hot [Unknown]
  - Off label use [Unknown]
  - Drug ineffective [Unknown]
  - Pain in extremity [Unknown]
  - Muscle spasms [Unknown]
  - Limb discomfort [Unknown]
  - Migraine [Unknown]
  - Headache [Unknown]
